FAERS Safety Report 6486981-3 (Version None)
Quarter: 2009Q4

REPORT INFORMATION
  Report Type: 
  Country: None (occurrence: None)
  Receive Date: 20091210
  Receipt Date: 20091117
  Transmission Date: 20100525
  Serious: No
  Sender: FDA-Public Use
  Company Number: B0606719A

PATIENT
  Age: 37 Year
  Sex: Male

DRUGS (1)
  1. RELENZA [Suspect]
     Indication: DRUG USE FOR UNKNOWN INDICATION
     Dosage: 1BLS TWICE PER DAY
     Route: 055
     Dates: start: 20091113

REACTIONS (1)
  - DRUG ADMINISTRATION ERROR [None]
